FAERS Safety Report 8026983-9 (Version None)
Quarter: 2012Q1

REPORT INFORMATION
  Report Type: 
  Country: None (occurrence: None)
  Receive Date: 20120106
  Receipt Date: 20120103
  Transmission Date: 20120608
  Serious: Yes (Hospitalization, Congenital Anomaly, Other)
  Sender: FDA-Public Use
  Company Number: US-PFIZER INC-2011151123

PATIENT
  Sex: Male
  Weight: 2.7 kg

DRUGS (8)
  1. ZOFRAN [Concomitant]
     Indication: VOMITING
     Dosage: UNK
     Route: 064
  2. REGLAN [Concomitant]
     Indication: VOMITING
     Dosage: UNK
     Route: 064
  3. MULTI-VITAMINS [Concomitant]
     Dosage: UNK
     Route: 064
  4. ZOLOFT [Suspect]
     Dosage: 100 MG, UNK
     Route: 064
     Dates: start: 20060518
  5. ZOLOFT [Suspect]
     Dosage: 100 MG, 1X/DAY
     Route: 064
     Dates: start: 20070404
  6. ACETAMINOPHEN [Concomitant]
     Dosage: 25-500MG
     Route: 064
     Dates: start: 20061201
  7. ZOLOFT [Suspect]
     Indication: DEPRESSION
     Dosage: 25MG FOR 7 DAYS
     Route: 064
     Dates: start: 20060303
  8. ZOLOFT [Suspect]
     Dosage: 50 MG DAILY
     Route: 064
     Dates: start: 20060301, end: 20060101

REACTIONS (15)
  - VOCAL CORD PARALYSIS [None]
  - GASTROOESOPHAGEAL REFLUX DISEASE [None]
  - FOETAL EXPOSURE DURING PREGNANCY [None]
  - COARCTATION OF THE AORTA [None]
  - PULMONARY CONGESTION [None]
  - PHIMOSIS [None]
  - ATRIAL SEPTAL DEFECT [None]
  - AORTIC VALVE INCOMPETENCE [None]
  - VENTRICULAR SEPTAL DEFECT [None]
  - TRICUSPID VALVE INCOMPETENCE [None]
  - TRUNCUS ARTERIOSUS PERSISTENT [None]
  - AORTIC DILATATION [None]
  - PULMONARY VALVE STENOSIS [None]
  - PULMONARY VALVE INCOMPETENCE [None]
  - CARDIOMEGALY [None]
